FAERS Safety Report 15525538 (Version 1)
Quarter: 2018Q4

REPORT INFORMATION
  Report Type: Spontaneous
  Country: MY (occurrence: MY)
  Receive Date: 20181019
  Receipt Date: 20181019
  Transmission Date: 20190205
  Serious: Yes (Death, Life-Threatening, Other)
  Sender: FDA-Public Use
  Company Number: MY-PFIZER INC-2018399754

PATIENT
  Age: 48 Year
  Sex: Male

DRUGS (8)
  1. CYTARABINE. [Suspect]
     Active Substance: CYTARABINE
     Indication: CHRONIC MYELOID LEUKAEMIA
     Dosage: UNK (STANDARD INDUCTION CHEMOTHERAPY)
     Dates: start: 2015
  2. CYTARABINE. [Suspect]
     Active Substance: CYTARABINE
     Indication: MALIGNANT ASCITES
  3. CEFTRIAXONE. [Concomitant]
     Active Substance: CEFTRIAXONE
     Indication: PERITONITIS BACTERIAL
     Dosage: UNK
     Route: 042
     Dates: start: 2015
  4. CYTARABINE. [Suspect]
     Active Substance: CYTARABINE
     Indication: LEUKAEMIC INFILTRATION EXTRAMEDULLARY
  5. IDARUBICIN HCL [Suspect]
     Active Substance: IDARUBICIN HYDROCHLORIDE
     Indication: CHRONIC MYELOID LEUKAEMIA
     Dosage: UNK (STANDARD INDUCTION CHEMOTHERAPY)
     Dates: start: 2015
  6. MEROPENEM. [Concomitant]
     Active Substance: MEROPENEM
     Indication: PYREXIA
     Dosage: UNK
     Route: 042
     Dates: start: 201501
  7. IDARUBICIN HCL [Suspect]
     Active Substance: IDARUBICIN HYDROCHLORIDE
     Indication: MALIGNANT ASCITES
     Dosage: UNK (DOSE WAS MODIFIED)
  8. IDARUBICIN HCL [Suspect]
     Active Substance: IDARUBICIN HYDROCHLORIDE
     Indication: LEUKAEMIC INFILTRATION EXTRAMEDULLARY

REACTIONS (4)
  - Pneumonia fungal [Unknown]
  - Pulmonary tuberculosis [Unknown]
  - Febrile neutropenia [Unknown]
  - Pleural effusion [Unknown]

NARRATIVE: CASE EVENT DATE: 2015
